FAERS Safety Report 4847489-1 (Version None)
Quarter: 2005Q4

REPORT INFORMATION
  Report Type: 
  Country: None (occurrence: None)
  Receive Date: 20051205
  Receipt Date: 20051013
  Transmission Date: 20060501
  Serious: Yes (Death, Life-Threatening, Hospitalization)
  Sender: FDA-Public Use
  Company Number: A01200507016

PATIENT
  Age: 80 Year
  Sex: Male

DRUGS (7)
  1. AMIODARONE HCL [Suspect]
     Indication: ATRIAL FIBRILLATION
     Dosage: 3 MONTHS - TIME TO ONSET : 3 MONTHS
  2. BENDROFLUAZIDE [Concomitant]
  3. LISINOPRIL [Concomitant]
  4. GLICLAZIDE [Concomitant]
  5. GTN SPRAY (GLYCERYL TRINITRATE) [Concomitant]
  6. DICLOFENAC [Concomitant]
  7. CO-DYDRAMOL [Concomitant]

REACTIONS (24)
  - ACIDOSIS [None]
  - ANURIA [None]
  - BLOOD POTASSIUM DECREASED [None]
  - BRADYCARDIA [None]
  - CARDIAC ARREST [None]
  - DECEREBRATION [None]
  - DELAYED RECOVERY FROM ANAESTHESIA [None]
  - ELECTROCARDIOGRAM ABNORMAL [None]
  - ELECTROCARDIOGRAM QT PROLONGED [None]
  - FALL [None]
  - HAEMORRHAGIC CEREBRAL INFARCTION [None]
  - HEAD INJURY [None]
  - HYPERTENSION [None]
  - HYPOKALAEMIA [None]
  - HYPOTENSION [None]
  - HYPOXIC ENCEPHALOPATHY [None]
  - LACERATION [None]
  - LOSS OF CONSCIOUSNESS [None]
  - MOVEMENT DISORDER [None]
  - MYOCARDIAL INFARCTION [None]
  - RENAL INFARCT [None]
  - TORSADE DE POINTES [None]
  - TROPONIN I INCREASED [None]
  - VENTRICULAR FIBRILLATION [None]
